FAERS Safety Report 7884439-8 (Version None)
Quarter: 2011Q4

REPORT INFORMATION
  Report Type: 
  Country: None (occurrence: None)
  Receive Date: 20111102
  Receipt Date: 20110831
  Transmission Date: 20120403
  Serious: No
  Sender: FDA-Public Use
  Company Number: US-ASTRAZENECA-2011SE36444

PATIENT
  Age: 54 Year
  Sex: Male
  Weight: 63.6 kg

DRUGS (12)
  1. MINOCIN [Concomitant]
  2. VANDETANIB [Suspect]
     Route: 048
     Dates: start: 20110506
  3. VANDETANIB [Suspect]
     Route: 048
     Dates: start: 20110601
  4. SYNTHROID [Concomitant]
  5. LANSOPRAZOLE [Concomitant]
  6. PREGABALIN [Concomitant]
  7. VANDETANIB [Suspect]
     Indication: THYROID CANCER
     Route: 048
     Dates: start: 20110506
  8. LYRICA [Concomitant]
  9. VANDETANIB [Suspect]
     Route: 048
     Dates: start: 20110601
  10. MORPHINE SULFATE [Concomitant]
  11. MORPHINE [Concomitant]
  12. LEVOTHYROXINE SODIUM [Concomitant]

REACTIONS (5)
  - RASH [None]
  - DIARRHOEA [None]
  - FATIGUE [None]
  - PAIN [None]
  - BACK PAIN [None]
